FAERS Safety Report 7283457 (Version 5)
Quarter: 2013Q2

REPORT INFORMATION
  Report Type: Spontaneous
  Country: US (occurrence: US)
  Receive Date: 20100218
  Receipt Date: 20130617
  Transmission Date: 20140414
  Serious: Yes (Other)
  Sender: FDA-Public Use
  Company Number: PHEH2009US04536

PATIENT
  Age: 57 Year
  Sex: Female
  Weight: 66.3 kg

DRUGS (44)
  1. ESTALIS [Suspect]
     Route: 062
     Dates: start: 2004, end: 2007
  2. VIVELLE DOT [Suspect]
  3. WELLBUTRIN [Concomitant]
     Dosage: 150 MG
  4. ZOLOFT (SERTRALINE HYDROCHLORIDE) [Concomitant]
     Dosage: 50 MG
     Dates: start: 2005
  5. CLIMARA [Concomitant]
  6. PROMETRIUM [Concomitant]
     Dosage: 200 MG
  7. CETAMOL [Concomitant]
  8. TESTOSTERON [Concomitant]
     Dosage: 2 %
     Dates: start: 20010515
  9. VITA-E [Concomitant]
  10. NATURAL REMEDIES [Concomitant]
  11. MUCINEX [Concomitant]
  12. TAMOXIFEN [Concomitant]
  13. TOPAMAX [Concomitant]
  14. SYNTHROID [Concomitant]
  15. AMBIEN [Concomitant]
  16. BACLOFEN [Concomitant]
  17. EFFEXOR [Concomitant]
  18. VITAMIN A [Concomitant]
  19. CALCIUM [Concomitant]
  20. MULTIVITAMINS [Concomitant]
  21. FLAXSEED OIL [Concomitant]
  22. BLACK COHOSH [Concomitant]
  23. IBUPROFEN [Concomitant]
  24. VICODIN [Concomitant]
  25. ASPIRIN SOLUTION [Concomitant]
  26. THYROID THERAPY [Concomitant]
  27. GLUCOSAMINE SULFATE [Concomitant]
  28. ACIDOPHILUS ^ZYMA^ [Concomitant]
  29. FLEXERIL [Concomitant]
  30. FLUCONAZOLE [Concomitant]
  31. ZITHROMAX Z-PACK [Concomitant]
  32. HYDROCODONE [Concomitant]
  33. ACYCLOVIR [Concomitant]
  34. METHOCARBAMOL [Concomitant]
  35. BUPROPION [Concomitant]
  36. TRAZODONE [Concomitant]
  37. DOXEPIN [Concomitant]
  38. RELPAX [Concomitant]
  39. KRISTALOSE [Concomitant]
  40. ROZEREM [Concomitant]
  41. AMITRIPTYLINE [Concomitant]
  42. FEMARA [Concomitant]
  43. BABY ASPIRIN [Concomitant]
  44. IMITREX ^CERENEX^ [Concomitant]

REACTIONS (28)
  - Adenoma benign [Unknown]
  - Rectal haemorrhage [Unknown]
  - Pleurisy [Unknown]
  - Intervertebral disc displacement [Unknown]
  - Breast cancer [Unknown]
  - Intraductal proliferative breast lesion [Unknown]
  - Injury [Unknown]
  - Breast tenderness [Unknown]
  - Radiation skin injury [Unknown]
  - Breast swelling [Unknown]
  - Breast pain [Unknown]
  - Insomnia [Unknown]
  - Dyspnoea [Unknown]
  - Headache [Unknown]
  - Sinus headache [Unknown]
  - Pain [Unknown]
  - Cough [Unknown]
  - Dizziness [Unknown]
  - Hot flush [Unknown]
  - Pharyngitis [Unknown]
  - Fatigue [Unknown]
  - Erythema [Unknown]
  - Pruritus [Unknown]
  - Spinal osteoarthritis [Unknown]
  - Neck pain [Unknown]
  - Ecchymosis [Unknown]
  - Breast cancer metastatic [Unknown]
  - Tooth disorder [Unknown]
